FAERS Safety Report 8048179-7 (Version None)
Quarter: 2012Q1

REPORT INFORMATION
  Report Type: 
  Country: None (occurrence: None)
  Receive Date: 20120113
  Receipt Date: 20120113
  Transmission Date: 20120608
  Serious: Yes (Hospitalization)
  Sender: FDA-Public Use
  Company Number: None

PATIENT
  Age: 86 Year
  Sex: Female

DRUGS (6)
  1. PROAIR HFA [Concomitant]
  2. PREDNISONE [Concomitant]
  3. LASIX [Concomitant]
  4. REVLIMID [Suspect]
     Indication: MULTIPLE MYELOMA
     Dosage: 5MG QD ORALLY
     Route: 048
  5. TENORMIN [Concomitant]
  6. ALENDRONATE SODIUM [Concomitant]

REACTIONS (5)
  - RASH [None]
  - RESPIRATORY TRACT INFECTION [None]
  - BRONCHITIS [None]
  - PANCYTOPENIA [None]
  - FATIGUE [None]
